FAERS Safety Report 15927631 (Version 3)
Quarter: 2020Q1

REPORT INFORMATION
  Report Type: Spontaneous
  Country: US (occurrence: US)
  Receive Date: 20190205
  Receipt Date: 20200129
  Transmission Date: 20200409
  Serious: No
  Sender: FDA-Public Use
  Company Number: US-ALLERGAN-1859274US

PATIENT
  Age: 50 Year
  Sex: Female

DRUGS (2)
  1. BOTOX [Suspect]
     Active Substance: ONABOTULINUMTOXINA
     Dosage: ACTUAL: 10 UNITS TO SCALP AND BACK OF NECK
     Route: 030
     Dates: start: 20181130, end: 20181130
  2. BOTOX [Suspect]
     Active Substance: ONABOTULINUMTOXINA
     Indication: MIGRAINE
     Dosage: ACTUAL: 10 UNITS TO SCALP AND BACK OF NECK
     Route: 030
     Dates: start: 20181130, end: 20181130

REACTIONS (2)
  - Drug ineffective [Unknown]
  - Migraine [Recovered/Resolved]

NARRATIVE: CASE EVENT DATE: 20181128
